FAERS Safety Report 20876692 (Version 6)
Quarter: 2022Q3

REPORT INFORMATION
  Report Type: Report from Study
  Country: CO (occurrence: CO)
  Receive Date: 20220526
  Receipt Date: 20220920
  Transmission Date: 20221027
  Serious: Yes (Hospitalization, Other)
  Sender: FDA-Public Use
  Company Number: CO-NOVARTISPH-NVSC2022CO107536

PATIENT
  Age: 49 Year
  Sex: Female
  Weight: 72.9 kg

DRUGS (7)
  1. KISQALI [Suspect]
     Active Substance: RIBOCICLIB
     Indication: Breast cancer metastatic
     Dosage: 600 MG, QD
     Route: 048
  2. KISQALI [Suspect]
     Active Substance: RIBOCICLIB
     Dosage: 3 DOSAGE FORM, QD(3 TABLETS/ DOES NOT REMEMBER MILLIGRAMS, DAILY X 21 DAYS, RESTS 7 DAYS AND RESUME)
     Route: 048
     Dates: start: 202205
  3. LETROZOLE [Suspect]
     Active Substance: LETROZOLE
     Indication: Breast cancer metastatic
     Dosage: UNK UNK, QD
     Route: 048
  4. FULVESTRANT [Suspect]
     Active Substance: FULVESTRANT
     Indication: Breast cancer metastatic
     Dosage: UNK (EVERY 15 DAYS)
     Route: 042
  5. DIHYDROCODEINE [Concomitant]
     Active Substance: DIHYDROCODEINE
     Indication: Pain
     Dosage: UNK, QD
     Route: 048
     Dates: start: 202203
  6. AMLODIPINE [Concomitant]
     Active Substance: AMLODIPINE BESYLATE
     Indication: Hypertension
     Dosage: 10 MG, QD
     Route: 048
     Dates: start: 2020
  7. OMEPRAZOLE [Concomitant]
     Active Substance: OMEPRAZOLE
     Indication: Gastritis
     Dosage: UNK, QD
     Route: 048
     Dates: start: 2019

REACTIONS (18)
  - Hepatic pain [Unknown]
  - Malaise [Unknown]
  - Vomiting [Unknown]
  - Postmenopausal haemorrhage [Unknown]
  - Endometrial cancer metastatic [Unknown]
  - Metastases to bone [Unknown]
  - Metastases to thorax [Unknown]
  - Breast cancer recurrent [Unknown]
  - Illness [Unknown]
  - Somnolence [Unknown]
  - Crying [Unknown]
  - Mood altered [Unknown]
  - Stress [Unknown]
  - Depressed mood [Unknown]
  - Headache [Unknown]
  - Peripheral swelling [Unknown]
  - Rubber sensitivity [Unknown]
  - Off label use [Unknown]

NARRATIVE: CASE EVENT DATE: 20211101
